FAERS Safety Report 25861697 (Version 1)
Quarter: 2025Q3

REPORT INFORMATION
  Report Type: Spontaneous
  Country: EU (occurrence: EU)
  Receive Date: 20250930
  Receipt Date: 20250930
  Transmission Date: 20251021
  Serious: Yes (Hospitalization, Other)
  Sender: AUROBINDO
  Company Number: EU-AFSSAPS-SE2025000800

PATIENT
  Sex: Male
  Weight: 79 kg

DRUGS (3)
  1. ERTAPENEM [Interacting]
     Active Substance: ERTAPENEM
     Indication: Bacteraemia
     Route: 042
     Dates: start: 20250723, end: 20250804
  2. ENVARSUS XR [Interacting]
     Active Substance: TACROLIMUS
     Indication: Prophylaxis against transplant rejection
     Dosage: 2 MILLIGRAM, UNK
     Route: 048
     Dates: start: 2021
  3. VFEND [Interacting]
     Active Substance: VORICONAZOLE
     Indication: Fungal infection
     Route: 042
     Dates: start: 20250729, end: 20250730

REACTIONS (3)
  - Toxic encephalopathy [Recovered/Resolved]
  - Drug interaction [Recovered/Resolved]
  - Overdose [Recovered/Resolved]

NARRATIVE: CASE EVENT DATE: 20250729
